FAERS Safety Report 23680101 (Version 2)
Quarter: 2024Q2

REPORT INFORMATION
  Report Type: Spontaneous
  Country: DE (occurrence: DE)
  Receive Date: 20240327
  Receipt Date: 20240418
  Transmission Date: 20240716
  Serious: Yes (Hospitalization, Other)
  Sender: FDA-Public Use
  Company Number: DE-SANDOZ-SDZ2024DE031493

PATIENT
  Sex: Female

DRUGS (2)
  1. AMITRIPTYLINE HYDROCHLORIDE [Suspect]
     Active Substance: AMITRIPTYLINE HYDROCHLORIDE
     Indication: Dysaesthesia
     Dosage: 12.5 MG, IN THE EVENING
     Route: 065
     Dates: start: 20240220, end: 20240223
  2. L-Thyroxine farmak [Concomitant]
     Indication: Product used for unknown indication
     Dosage: 125 MG
     Route: 065

REACTIONS (4)
  - Serotonin syndrome [Unknown]
  - Asthenia [Unknown]
  - Peripheral coldness [Unknown]
  - Alcohol interaction [Unknown]
